FAERS Safety Report 5894911-8 (Version None)
Quarter: 2008Q3

REPORT INFORMATION
  Report Type: 
  Country: None (occurrence: None)
  Receive Date: 20080924
  Receipt Date: 20080916
  Transmission Date: 20090109
  Serious: Yes (Other)
  Sender: FDA-Public Use
  Company Number: PHHY2008BR21598

PATIENT
  Age: 41 Year
  Sex: Male
  Weight: 79 kg

DRUGS (1)
  1. DICLOFENAC SODIUM [Suspect]
     Dosage: 100 MG UNK
     Route: 048

REACTIONS (2)
  - SPINAL DISORDER [None]
  - SURGERY [None]
